FAERS Safety Report 25547411 (Version 1)
Quarter: 2025Q3

REPORT INFORMATION
  Report Type: Spontaneous
  Country: EU (occurrence: EU)
  Receive Date: 20250714
  Receipt Date: 20250714
  Transmission Date: 20251021
  Serious: Yes (Other)
  Sender: SANDOZ
  Company Number: EU-MYLANLABS-2020M1001031

PATIENT
  Age: 81 Year
  Sex: Female

DRUGS (38)
  1. BUPRENORPHINE [Suspect]
     Active Substance: BUPRENORPHINE
     Indication: Neuralgia
     Route: 065
  2. BUPRENORPHINE [Suspect]
     Active Substance: BUPRENORPHINE
     Indication: Post herpetic neuralgia
  3. DULOXETINE [Suspect]
     Active Substance: DULOXETINE
     Indication: Neuralgia
     Route: 065
  4. GABAPENTIN [Suspect]
     Active Substance: GABAPENTIN
     Indication: Neuralgia
     Route: 065
  5. PREGABALIN [Suspect]
     Active Substance: PREGABALIN
     Indication: Post herpetic neuralgia
     Route: 048
  6. PREGABALIN [Suspect]
     Active Substance: PREGABALIN
     Indication: Neuralgia
  7. ACETAMINOPHEN\TRAMADOL [Suspect]
     Active Substance: ACETAMINOPHEN\TRAMADOL
     Indication: Back pain
     Dosage: 2 DF, QD,1 DOSAGE FORM, TWO TIMES A DAY (1  DOSAGE FORM, BID (75/650 MG))
     Route: 048
  8. ACETAMINOPHEN\TRAMADOL [Suspect]
     Active Substance: ACETAMINOPHEN\TRAMADOL
     Indication: Neuralgia
  9. CALTRATE [Concomitant]
     Active Substance: CALCIUM CARBONATE
     Indication: Product used for unknown indication
     Route: 065
  10. CAPSAICIN [Concomitant]
     Active Substance: CAPSAICIN
     Indication: Pain
     Dosage: UNK, QID (TOTAL OF 4X)
     Route: 065
  11. DIOSMIN\HESPERIDIN [Concomitant]
     Active Substance: DIOSMIN\HESPERIDIN
     Indication: Dyspnoea
     Route: 065
  12. DULOXETINE [Concomitant]
     Active Substance: DULOXETINE
     Indication: Neuralgia
     Route: 065
  13. GABAPENTIN [Concomitant]
     Active Substance: GABAPENTIN
     Indication: Neuralgia
     Route: 065
  14. LANSOPRAZOLE [Concomitant]
     Active Substance: LANSOPRAZOLE
     Indication: Product used for unknown indication
     Route: 048
  15. LANSOPRAZOLE [Concomitant]
     Active Substance: LANSOPRAZOLE
     Indication: Dyspnoea
     Route: 048
  16. METHYLCOBALAMIN [Concomitant]
     Active Substance: METHYLCOBALAMIN
     Indication: Product used for unknown indication
     Route: 065
  17. Mecobalamin;Pregabalin [Concomitant]
     Indication: Product used for unknown indication
     Route: 065
  18. METHYLPREDNISOLONE [Concomitant]
     Active Substance: METHYLPREDNISOLONE
     Indication: Dyspnoea
     Route: 065
  19. OXAZEPAM [Concomitant]
     Active Substance: OXAZEPAM
     Indication: Dyspnoea
     Route: 048
  20. PERINDOPRIL ARGININE [Concomitant]
     Active Substance: PERINDOPRIL ARGININE
     Indication: Product used for unknown indication
     Route: 048
  21. PERINDOPRIL [Concomitant]
     Active Substance: PERINDOPRIL
     Indication: Dyspnoea
     Route: 048
  22. PROPAFENONE [Concomitant]
     Active Substance: PROPAFENONE
     Indication: Dyspnoea
     Route: 048
  23. QUTENZA [Concomitant]
     Active Substance: CAPSAICIN
     Indication: Pain
     Dosage: 4 DF, QD4 DOSAGE FORM, ONCE A DAY (QID (TOTAL OF  4X))
     Route: 065
  24. QUTENZA [Concomitant]
     Active Substance: CAPSAICIN
     Route: 065
     Dates: start: 202505
  25. Rismyl [Concomitant]
     Indication: Dyspnoea
     Route: 048
  26. RISPERIDONE [Concomitant]
     Active Substance: RISPERIDONE
     Indication: Product used for unknown indication
     Route: 048
  27. ROSUVASTATIN CALCIUM [Concomitant]
     Active Substance: ROSUVASTATIN CALCIUM
     Indication: Dyspnoea
     Route: 048
  28. RUPATADINE [Concomitant]
     Active Substance: RUPATADINE
     Indication: Product used for unknown indication
     Route: 048
  29. ZOLPIDEM TARTRATE [Concomitant]
     Active Substance: ZOLPIDEM TARTRATE
     Indication: Dyspnoea
     Route: 065
  30. Tamalis [Concomitant]
     Indication: Product used for unknown indication
     Route: 048
  31. TAPENTADOL [Concomitant]
     Active Substance: TAPENTADOL
     Indication: Neuralgia
     Route: 065
  32. ACETAMINOPHEN\TRAMADOL [Concomitant]
     Active Substance: ACETAMINOPHEN\TRAMADOL
     Indication: Neuralgia
     Dosage: 1 DF, BID (EVERY 12 HOURS)
     Route: 065
  33. ACETAMINOPHEN\TRAMADOL [Concomitant]
     Active Substance: ACETAMINOPHEN\TRAMADOL
     Indication: Back pain
     Dosage: 1 DOSAGE FORM, BID (75/650 MG)
     Route: 048
  34. VENTOLIN [Concomitant]
     Active Substance: ALBUTEROL SULFATE
     Indication: Dyspnoea
     Route: 065
  35. VENTOLIN [Concomitant]
     Active Substance: ALBUTEROL SULFATE
     Indication: Wheezing
  36. LIDOCAINE [Concomitant]
     Active Substance: LIDOCAINE
     Dosage: 1 DOSAGE FORM, ONCE A DAY
     Route: 065
  37. LIDOCAINE [Concomitant]
     Active Substance: LIDOCAINE
     Indication: Neuralgia
     Dosage: 2 DF, BID (TWO MEDICATED PLASTERS)
     Route: 065
  38. XYZAL [Concomitant]
     Active Substance: LEVOCETIRIZINE DIHYDROCHLORIDE
     Indication: Dyspnoea
     Route: 048

REACTIONS (15)
  - Tachycardia [Recovered/Resolved]
  - Hyperhidrosis [Recovered/Resolved]
  - Constipation [Recovered/Resolved]
  - Seizure [Recovered/Resolved]
  - Tremor [Recovered/Resolved]
  - Arthralgia [Recovered/Resolved]
  - Alopecia [Not Recovered/Not Resolved]
  - Memory impairment [Recovered/Resolved]
  - Muscle spasms [Recovered/Resolved]
  - Chills [Recovered/Resolved]
  - Adverse reaction [Unknown]
  - Adverse drug reaction [Unknown]
  - Drug intolerance [Unknown]
  - Drug ineffective [Unknown]
  - Product use in unapproved indication [Unknown]
